FAERS Safety Report 14167056 (Version 1)
Quarter: 2017Q4

REPORT INFORMATION
  Report Type: Spontaneous
  Country: CN (occurrence: CN)
  Receive Date: 20171108
  Receipt Date: 20171108
  Transmission Date: 20180321
  Serious: Yes (Hospitalization, Other)
  Sender: FDA-Public Use
  Company Number: CN-CHARTWELL PHARMA-2033484

PATIENT
  Age: 52 Year
  Sex: Female

DRUGS (4)
  1. PREDNISOLONE. [Suspect]
     Active Substance: PREDNISOLONE
     Indication: PRODUCT USED FOR UNKNOWN INDICATION
  2. VINCRISTINE [Suspect]
     Active Substance: VINCRISTINE
  3. DAUNORUBICIN [Suspect]
     Active Substance: DAUNORUBICIN
  4. ASPARAGINASE [Suspect]
     Active Substance: ASPARAGINASE

REACTIONS (6)
  - Tumour lysis syndrome [Recovered/Resolved]
  - Pancytopenia [Recovered/Resolved]
  - Hypocalcaemia [Recovered/Resolved]
  - Hyperkalaemia [Recovered/Resolved]
  - Hyperphosphataemia [Recovered/Resolved]
  - Hyperuricosuria [Recovered/Resolved]
